FAERS Safety Report 6271954-6 (Version None)
Quarter: 2009Q3

REPORT INFORMATION
  Report Type: 
  Country: None (occurrence: None)
  Receive Date: 20090717
  Receipt Date: 20090707
  Transmission Date: 20100115
  Serious: Yes (Hospitalization)
  Sender: FDA-Public Use
  Company Number: US-AVENTIS-200914036EU

PATIENT
  Age: 65 Year
  Sex: Male
  Weight: 75 kg

DRUGS (10)
  1. ENOXAPARIN SODIUM [Suspect]
     Route: 058
     Dates: start: 20090205
  2. LANTUS [Concomitant]
     Dates: start: 20090201
  3. LEVOTHYROXINE SODIUM [Concomitant]
     Dates: start: 20090129, end: 20090204
  4. HUMALOG [Concomitant]
     Dates: start: 20080401, end: 20090126
  5. HUMALOG [Concomitant]
     Dates: start: 20090205
  6. CELEBREX [Concomitant]
     Dates: start: 20030101, end: 20090129
  7. OH CO MOTON HERBAL [Concomitant]
     Dates: start: 20081101, end: 20090129
  8. FERROUS SULFATE TAB [Concomitant]
     Dates: start: 20090205, end: 20090205
  9. PEPCID [Concomitant]
     Dates: start: 20090205, end: 20090212
  10. SENNA W/ DOCUSATE SODIUM [Concomitant]
     Dates: start: 20090205, end: 20090212

REACTIONS (2)
  - HAEMOGLOBIN DECREASED [None]
  - THROMBOCYTOPENIA [None]
